FAERS Safety Report 12647498 (Version 1)
Quarter: 2016Q3

REPORT INFORMATION
  Report Type: Spontaneous
  Country: US (occurrence: None)
  Receive Date: 20160811
  Receipt Date: 20160811
  Transmission Date: 20161109
  Serious: Yes (Disabling)
  Sender: FDA-Public Use
  Company Number: None

PATIENT
  Sex: Female
  Weight: 56.7 kg

DRUGS (9)
  1. CALCIUM [Concomitant]
     Active Substance: CALCIUM
  2. MULTI VITAMIN [Concomitant]
     Active Substance: VITAMINS
  3. AREDS 2 [Concomitant]
     Active Substance: MINERALS\VITAMINS
  4. VITAMIN D3 [Concomitant]
     Active Substance: CHOLECALCIFEROL
  5. ACTONEL [Suspect]
     Active Substance: RISEDRONATE SODIUM
     Indication: OSTEOPOROSIS
     Dosage: 1 TABLET
     Route: 048
     Dates: start: 201102, end: 20140929
  6. ASPIRIN. [Concomitant]
     Active Substance: ASPIRIN
  7. TRIAMTERENE HCTZ [Concomitant]
     Active Substance: HYDROCHLOROTHIAZIDE\TRIAMTERENE
  8. VITAMIN B12 [Concomitant]
     Active Substance: CYANOCOBALAMIN
  9. MAGNESIUM [Concomitant]
     Active Substance: MAGNESIUM

REACTIONS (9)
  - Fatigue [None]
  - Musculoskeletal disorder [None]
  - Chills [None]
  - Arthralgia [None]
  - Nasopharyngitis [None]
  - Hyperhidrosis [None]
  - Myalgia [None]
  - Middle insomnia [None]
  - Influenza [None]

NARRATIVE: CASE EVENT DATE: 2012
